FAERS Safety Report 10595222 (Version 1)
Quarter: 2014Q4

REPORT INFORMATION
  Report Type: Spontaneous
  Country: US (occurrence: None)
  Receive Date: 20141118
  Receipt Date: 20141118
  Transmission Date: 20150529
  Serious: Yes (Hospitalization)
  Sender: FDA-Public Use
  Company Number: US-001447

PATIENT
  Age: 73 Year
  Sex: Female

DRUGS (4)
  1. OTHER ANALGESICS AND ANTIPYRETICS [Concomitant]
  2. IBUPROFEN. [Concomitant]
     Active Substance: IBUPROFEN
  3. GATTEX [Suspect]
     Active Substance: TEDUGLUTIDE\WATER
     Indication: SHORT-BOWEL SYNDROME
     Dosage: STREN/VOLUM: 0.235 ML|FREQU: ONCE A DAY SUBCUTANEOUS)
     Route: 058
     Dates: start: 201307
  4. SOLUTIONS FOR PARENTERAL NUTRITION [Concomitant]
     Active Substance: AMINO ACIDS\DEXTROSE\ELECTROLYTES NOS

REACTIONS (4)
  - Hip fracture [None]
  - Gastrointestinal infection [None]
  - Musculoskeletal disorder [None]
  - Arthralgia [None]

NARRATIVE: CASE EVENT DATE: 201410
